FAERS Safety Report 8809699 (Version 1)
Quarter: 2012Q4

REPORT INFORMATION
  Report Type: 
  Country: US (occurrence: US)
  Receive Date: 20120926
  Receipt Date: 20120926
  Transmission Date: 20130627
  Serious: Yes (Other)
  Sender: FDA-Public Use
  Company Number: US-ROCHE-1125743

PATIENT
  Sex: Female

DRUGS (8)
  1. AVASTIN [Suspect]
     Indication: BREAST CANCER FEMALE
     Dosage: drug indication: MALIGNANT NEOPLASM OF FEMALE BREAST, OTHER SPECIFIED SITES OF FEMALE BREAST
     Route: 065
  2. HERCEPTIN [Suspect]
     Indication: BREAST CANCER
     Route: 065
     Dates: start: 200109
  3. XELODA [Suspect]
     Indication: BREAST CANCER
     Route: 065
     Dates: start: 200504
  4. ARIMIDEX [Concomitant]
     Route: 065
     Dates: start: 200109, end: 200301
  5. FASLODEX [Concomitant]
     Route: 065
     Dates: start: 200504
  6. ZOLADEX [Concomitant]
     Route: 065
     Dates: start: 200504
  7. ADRIAMYCIN [Concomitant]
  8. TAXOTERE [Concomitant]

REACTIONS (3)
  - Bone disorder [Unknown]
  - Bone disorder [Unknown]
  - Disease progression [Unknown]
